FAERS Safety Report 5449186-0 (Version None)
Quarter: 2007Q3

REPORT INFORMATION
  Report Type: 
  Country: None (occurrence: None)
  Receive Date: 20070911
  Receipt Date: 20070904
  Transmission Date: 20080115
  Serious: Yes (Congenital Anomaly)
  Sender: FDA-Public Use
  Company Number: US-BOEHRINGER INGELHEIM PHARMACEUTICALS, INC.-2007-BP-19833BP

PATIENT
  Age: 0 Day
  Sex: Female

DRUGS (4)
  1. VIRAMUNE [Suspect]
     Route: 015
  2. 3TC [Suspect]
     Route: 015
  3. AZT [Suspect]
     Route: 015
  4. NELFINAVIR [Suspect]
     Route: 015

REACTIONS (1)
  - POLYDACTYLY [None]
